FAERS Safety Report 17934412 (Version 2)
Quarter: 2020Q3

REPORT INFORMATION
  Report Type: Spontaneous
  Country: BE (occurrence: BE)
  Receive Date: 20200624
  Receipt Date: 20200824
  Transmission Date: 20201103
  Serious: Yes (Hospitalization, Other)
  Sender: FDA-Public Use
  Company Number: BE-BRISTOL-MYERS SQUIBB COMPANY-BMS-2020-047460

PATIENT
  Sex: Male

DRUGS (6)
  1. YERVOY [Suspect]
     Active Substance: IPILIMUMAB
     Indication: METASTASES TO KIDNEY
     Dosage: UNK
     Route: 065
     Dates: start: 202005
  2. G?CSF [Concomitant]
     Active Substance: GRANULOCYTE COLONY-STIMULATING FACTOR NOS
     Indication: PRODUCT USED FOR UNKNOWN INDICATION
     Dosage: UNK
     Route: 065
  3. CORTICOSTEROIDS [Concomitant]
     Active Substance: CORTICOSTEROID NOS
     Indication: PRODUCT USED FOR UNKNOWN INDICATION
     Dosage: UNK
     Route: 065
  4. OPDIVO [Suspect]
     Active Substance: NIVOLUMAB
     Indication: METASTASES TO SPINE
     Dosage: UNK
     Route: 065
     Dates: start: 202005
  5. YERVOY [Suspect]
     Active Substance: IPILIMUMAB
     Indication: METASTASES TO SPINE
  6. OPDIVO [Suspect]
     Active Substance: NIVOLUMAB
     Indication: METASTASES TO KIDNEY

REACTIONS (6)
  - Intestinal obstruction [Unknown]
  - Diarrhoea [Unknown]
  - Chills [Unknown]
  - C-reactive protein increased [Unknown]
  - Neutropenia [Unknown]
  - Clostridium colitis [Unknown]

NARRATIVE: CASE EVENT DATE: 202006
